FAERS Safety Report 8825211 (Version 1)
Quarter: 2012Q4

REPORT INFORMATION
  Report Type: 
  Country: US (occurrence: US)
  Receive Date: 20121004
  Receipt Date: 20121004
  Transmission Date: 20130627
  Serious: Yes (Death)
  Sender: FDA-Public Use
  Company Number: US-ROCHE-1131651

PATIENT
  Sex: Female

DRUGS (8)
  1. RITUXAN [Suspect]
     Indication: DERMATOMYOSITIS
     Route: 065
  2. RITUXAN [Suspect]
     Indication: POLYMYOSITIS
  3. RITUXAN [Suspect]
     Indication: DERMATOMYOSITIS
  4. RITUXAN [Suspect]
     Indication: OFF LABEL USE
  5. RITUXAN [Suspect]
     Indication: RHEUMATOID ARTHRITIS
  6. CELLCEPT [Suspect]
     Indication: PRODUCT USED FOR UNKNOWN INDICATION
     Route: 065
     Dates: start: 200606, end: 201005
  7. CELLCEPT [Suspect]
     Route: 065
     Dates: start: 201011
  8. CYTOXAN [Concomitant]
     Route: 065
     Dates: start: 201005, end: 201010

REACTIONS (1)
  - Death [Fatal]
